FAERS Safety Report 6071690-5 (Version None)
Quarter: 2009Q1

REPORT INFORMATION
  Report Type: 
  Country: None (occurrence: None)
  Receive Date: 20090209
  Receipt Date: 20090209
  Transmission Date: 20090719
  Serious: Yes (Hospitalization)
  Sender: FDA-Public Use
  Company Number: None

PATIENT
  Age: 64 Year
  Sex: Male

DRUGS (1)
  1. VANCOMYCIN HCL [Suspect]
     Indication: CELLULITIS
     Dosage: 2 GM BID IV
     Route: 042
     Dates: start: 20081107, end: 20081107

REACTIONS (9)
  - ANAPHYLACTIC REACTION [None]
  - CARDIO-RESPIRATORY ARREST [None]
  - CELLULITIS [None]
  - CHILLS [None]
  - EAR PAIN [None]
  - ENDOTRACHEAL INTUBATION COMPLICATION [None]
  - HYPERHIDROSIS [None]
  - INFUSION RELATED REACTION [None]
  - SEPTIC SHOCK [None]
